FAERS Safety Report 6135543-6 (Version None)
Quarter: 2009Q1

REPORT INFORMATION
  Report Type: 
  Country: None (occurrence: None)
  Receive Date: 20090327
  Receipt Date: 20090320
  Transmission Date: 20090719
  Serious: Yes (Other)
  Sender: FDA-Public Use
  Company Number: B0567106A

PATIENT
  Sex: Male

DRUGS (4)
  1. LAMOTRIGINE [Suspect]
     Dates: start: 19940101
  2. VALPROATE SODIUM [Concomitant]
     Dosage: 3300MG PER DAY
  3. OLANZAPINE [Concomitant]
     Dosage: 5MG PER DAY
  4. LORAZEPAM [Concomitant]

REACTIONS (4)
  - FEAR [None]
  - FOOD AVERSION [None]
  - HALLUCINATION, VISUAL [None]
  - PANIC REACTION [None]
